FAERS Safety Report 5479104-0 (Version None)
Quarter: 2007Q4

REPORT INFORMATION
  Report Type: 
  Country: None (occurrence: None)
  Receive Date: 20071006
  Receipt Date: 20070925
  Transmission Date: 20080405
  Serious: Yes (Other)
  Sender: FDA-Public Use
  Company Number: US-PFIZER INC-2007081725

PATIENT
  Sex: Male

DRUGS (15)
  1. GENOTROPIN [Suspect]
     Indication: OFF LABEL USE
  2. ATENOLOL [Concomitant]
  3. BUPROPION HCL [Concomitant]
  4. CRESTOR [Concomitant]
  5. CYMBALTA [Concomitant]
  6. NORVIR [Concomitant]
  7. OXYCONTIN [Concomitant]
  8. PREVACID [Concomitant]
  9. REYATAZ [Concomitant]
  10. TRICOR [Concomitant]
  11. VIREAD [Concomitant]
  12. ZETIA [Concomitant]
  13. ZOVIRAX [Concomitant]
  14. TESTOSTERONE [Concomitant]
  15. FLONASE [Concomitant]

REACTIONS (2)
  - PHARYNGEAL OEDEMA [None]
  - SWOLLEN TONGUE [None]
